FAERS Safety Report 4333862-7 (Version None)
Quarter: 2004Q2

REPORT INFORMATION
  Report Type: 
  Country: None (occurrence: None)
  Receive Date: 20040402
  Receipt Date: 20040325
  Transmission Date: 20050107
  Serious: Yes (Hospitalization, Other)
  Sender: FDA-Public Use
  Company Number: 2004-02-2234

PATIENT
  Age: 72 Year
  Sex: Female
  Weight: 62 kg

DRUGS (3)
  1. CELESTAMINE TAB [Suspect]
     Indication: ASTHMA
     Dosage: 1 TAB QD ORAL
     Route: 048
  2. GLEEVEC [Suspect]
     Indication: GASTROINTESTINAL STROMAL TUMOUR
     Dosage: 400 MG QD ORAL
     Route: 048
     Dates: start: 20021101
  3. TAGAMET [Suspect]
     Dosage: 400 MG QD ORAL
     Route: 048

REACTIONS (14)
  - ASCITES [None]
  - BODY TEMPERATURE INCREASED [None]
  - DRUG INTERACTION [None]
  - FACE OEDEMA [None]
  - FLATULENCE [None]
  - GASTRIC PERFORATION [None]
  - HEART RATE INCREASED [None]
  - LEIOMYOSARCOMA [None]
  - METASTASES TO ADRENALS [None]
  - METASTASES TO LIVER [None]
  - METASTASES TO PERITONEUM [None]
  - OEDEMA PERIPHERAL [None]
  - PERITONITIS [None]
  - WHITE BLOOD CELL COUNT INCREASED [None]
